FAERS Safety Report 9431811 (Version 1)
Quarter: 2013Q3

REPORT INFORMATION
  Report Type: Spontaneous
  Country: US (occurrence: None)
  Receive Date: 20130726
  Receipt Date: 20130726
  Transmission Date: 20140515
  Serious: Yes (Hospitalization)
  Sender: FDA-Public Use
  Company Number: AUR-APL-2013-04912

PATIENT
  Age: 67 Year
  Sex: Female

DRUGS (7)
  1. LISINOPRIL [Suspect]
     Indication: PRODUCT USED FOR UNKNOWN INDICATION
     Dosage: 10 MG (10 MG, 1 IN 1 D)
     Dates: start: 20060404
  2. LISINOPRIL [Suspect]
     Dosage: 10 MG (10 MG, 1 IN 1 D)
     Dates: start: 20060404
  3. NIFEDIPINE [Suspect]
     Indication: PRODUCT USED FOR UNKNOWN INDICATION
     Dosage: 10 MG (10 MG, 1 IN 1 D)
     Dates: start: 20060429
  4. HYDROCHLOROTHIAZIDE\TRIAMTERENE [Suspect]
     Indication: PRODUCT USED FOR UNKNOWN INDICATION
     Dosage: 3.75 MG)
     Dates: start: 20060622
  5. TRIAMTERENE [Suspect]
     Dates: start: 200702
  6. SYNTHROID (LEVOTHYROZINE SODIUM) [Concomitant]
  7. PREMARIN (ESTROGENS CONJUGATED [Concomitant]

REACTIONS (7)
  - Drug hypersensitivity [None]
  - Palpitations [None]
  - Dizziness [None]
  - Feeling jittery [None]
  - Disorientation [None]
  - Nausea [None]
  - Headache [None]
